FAERS Safety Report 6312360-5 (Version None)
Quarter: 2009Q3

REPORT INFORMATION
  Report Type: 
  Country: None (occurrence: None)
  Receive Date: 20090817
  Receipt Date: 20090810
  Transmission Date: 20100115
  Serious: Yes (Hospitalization)
  Sender: FDA-Public Use
  Company Number: US-GENENTECH-265421

PATIENT
  Sex: Female
  Weight: 65 kg

DRUGS (23)
  1. BLINDED ANTI-CD40 [Suspect]
     Indication: DIFFUSE LARGE B-CELL LYMPHOMA
     Dosage: 520 MG, 1/WEEK
     Route: 042
     Dates: start: 20080708, end: 20080708
  2. BLINDED PLACEBO [Suspect]
     Indication: DIFFUSE LARGE B-CELL LYMPHOMA
     Dosage: 520 MG, 1/WEEK
     Route: 042
     Dates: start: 20080708, end: 20080708
  3. BLINDED ANTI-CD40 [Suspect]
     Dosage: 130 MG, SINGLE
     Route: 042
     Dates: start: 20080630, end: 20080630
  4. BLINDED PLACEBO [Suspect]
     Dosage: 130 MG, SINGLE
     Route: 042
     Dates: start: 20080630, end: 20080630
  5. BLINDED ANTI-CD40 [Suspect]
     Dosage: 260 MG, SINGLE
     Route: 042
     Dates: start: 20080703, end: 20080703
  6. BLINDED PLACEBO [Suspect]
     Dosage: 260 MG, SINGLE
     Route: 042
     Dates: start: 20080703, end: 20080703
  7. RITUXAN [Suspect]
     Indication: DIFFUSE LARGE B-CELL LYMPHOMA
     Dosage: 645 MG, Q3W
     Route: 042
     Dates: start: 20080629, end: 20080629
  8. ETOPOSIDE [Suspect]
     Indication: DIFFUSE LARGE B-CELL LYMPHOMA
     Dosage: 172 MG, Q3W
     Route: 042
     Dates: start: 20080703, end: 20080703
  9. ETOPOSIDE [Suspect]
     Dosage: 172 MG, Q3W
     Route: 042
     Dates: start: 20080701, end: 20080701
  10. ETOPOSIDE [Suspect]
     Dosage: 172 MG, Q3W
     Route: 042
     Dates: start: 20080702, end: 20080702
  11. CARBOPLATIN [Suspect]
     Indication: DIFFUSE LARGE B-CELL LYMPHOMA
     Dosage: 664 MG, Q3W
     Route: 042
     Dates: start: 20080702, end: 20080702
  12. IFOSFAMIDE [Suspect]
     Indication: DIFFUSE LARGE B-CELL LYMPHOMA
     Dosage: 8600 MG, Q3W
     Route: 042
     Dates: start: 20080702, end: 20080703
  13. ALLOPURINOL [Concomitant]
     Indication: DRUG USE FOR UNKNOWN INDICATION
     Dosage: UNK
     Dates: start: 20080306
  14. FUROSEMIDE [Concomitant]
     Indication: DRUG USE FOR UNKNOWN INDICATION
     Dosage: UNK
     Dates: start: 20080306, end: 20080713
  15. POTASSIUM CHLORIDE [Concomitant]
     Indication: DRUG USE FOR UNKNOWN INDICATION
     Dosage: UNK
     Dates: start: 20080306, end: 20080713
  16. GLICLAZIDE [Concomitant]
     Indication: DRUG USE FOR UNKNOWN INDICATION
     Dosage: UNK
     Dates: start: 20080306, end: 20080713
  17. OMEPRAZOLE [Concomitant]
     Indication: DRUG USE FOR UNKNOWN INDICATION
     Dosage: UNK
     Dates: start: 20080306
  18. NITROGLYCERINUM [Concomitant]
     Indication: DRUG USE FOR UNKNOWN INDICATION
     Dosage: UNK
     Dates: start: 20080306
  19. ACENOCOUMAROL [Concomitant]
     Indication: DRUG USE FOR UNKNOWN INDICATION
     Dosage: UNK
     Dates: start: 20080306, end: 20080713
  20. CARVEDILOL [Concomitant]
     Indication: DRUG USE FOR UNKNOWN INDICATION
     Dosage: UNK
     Dates: start: 20080306
  21. TRAMADOL HCL [Concomitant]
     Indication: DRUG USE FOR UNKNOWN INDICATION
     Dosage: UNK
     Dates: start: 20080306, end: 20080713
  22. ALPRAZOLAM [Concomitant]
     Indication: DRUG USE FOR UNKNOWN INDICATION
     Dosage: UNK
     Dates: start: 20080306
  23. CIPROFLOXACIN [Concomitant]
     Indication: DRUG USE FOR UNKNOWN INDICATION
     Dosage: UNK
     Dates: start: 20080701, end: 20080713

REACTIONS (1)
  - HAEMORRHOID INFECTION [None]
